FAERS Safety Report 14267476 (Version 1)
Quarter: 2017Q4

REPORT INFORMATION
  Report Type: Spontaneous
  Country: US (occurrence: US)
  Receive Date: 20171209
  Receipt Date: 20171209
  Transmission Date: 20180321
  Serious: No
  Sender: FDA-Public Use
  Company Number: None

PATIENT
  Age: 34 Year
  Sex: Female
  Weight: 67.05 kg

DRUGS (1)
  1. VENLAFAXINE HYDROCHLORIDE EXTENDED RELEASE CAPSULES, 37.5 MG [Suspect]
     Active Substance: VENLAFAXINE HYDROCHLORIDE
     Indication: ANXIETY
     Dosage: ?          QUANTITY:1 CAPSULE(S);?
     Route: 048
     Dates: start: 20170712, end: 20170908

REACTIONS (7)
  - Hot flush [None]
  - Withdrawal syndrome [None]
  - Anxiety [None]
  - Product substitution issue [None]
  - Depression [None]
  - Drug ineffective [None]
  - Insomnia [None]

NARRATIVE: CASE EVENT DATE: 20170910
